FAERS Safety Report 5601931-7 (Version None)
Quarter: 2008Q1

REPORT INFORMATION
  Report Type: 
  Country: None (occurrence: None)
  Receive Date: 20080125
  Receipt Date: 20080114
  Transmission Date: 20080703
  Serious: Yes (Other)
  Sender: FDA-Public Use
  Company Number: US-BAYER-200717250NA

PATIENT
  Age: 27 Year
  Sex: Female
  Weight: 76 kg

DRUGS (1)
  1. MIRENA [Suspect]
     Indication: CONTRACEPTION
     Route: 015
     Dates: start: 20071015, end: 20071126

REACTIONS (11)
  - ANXIETY [None]
  - DEPRESSION [None]
  - DIZZINESS [None]
  - FLANK PAIN [None]
  - NAUSEA [None]
  - PALPITATIONS [None]
  - PANIC ATTACK [None]
  - SUICIDAL IDEATION [None]
  - TACHYCARDIA [None]
  - VAGINAL HAEMORRHAGE [None]
  - WEIGHT DECREASED [None]
